FAERS Safety Report 4582015-6 (Version None)
Quarter: 2005Q1

REPORT INFORMATION
  Report Type: 
  Country: None (occurrence: None)
  Receive Date: 20050119
  Receipt Date: 20040708
  Transmission Date: 20050727
  Serious: Yes (Hospitalization)
  Sender: FDA-Public Use
  Company Number: A03200402239

PATIENT
  Age: 80 Year
  Sex: Female
  Weight: 79.3795 kg

DRUGS (9)
  1. PLAVIX [Suspect]
     Indication: STENT PLACEMENT
     Dosage: 75 MG QD - ORAL
     Route: 048
     Dates: start: 20040521
  2. ACETYLSALICYLIC ACID SRT [Concomitant]
  3. FUROSEMIDE [Concomitant]
  4. ESOMEPRAZOLE [Concomitant]
  5. ATORBVASTATIN [Concomitant]
  6. METOPROLOL SUCCINATE [Concomitant]
  7. NITROGLYCERIN [Concomitant]
  8. ISOSORBIDE MONONITRATE [Concomitant]
  9. ARTIFICIAL TEARS [Concomitant]

REACTIONS (3)
  - CONTUSION [None]
  - OEDEMA PERIPHERAL [None]
  - TRAUMATIC HAEMORRHAGE [None]
